FAERS Safety Report 4308817-9 (Version None)
Quarter: 2004Q1

REPORT INFORMATION
  Report Type: 
  Country: None (occurrence: None)
  Receive Date: 20040227
  Receipt Date: 20040218
  Transmission Date: 20041129
  Serious: Yes (Hospitalization, Other)
  Sender: FDA-Public Use
  Company Number: 2004010829

PATIENT
  Age: 35 Year
  Sex: Male
  Weight: 65 kg

DRUGS (7)
  1. VFEND [Suspect]
     Indication: FUNGAL ABSCESS CENTRAL NERVOUS SYSTEM
     Dosage: 900 MG (BID),
  2. PHENYTOIN SODIUM [Concomitant]
  3. LANZOPRAZOLE (LANSOPRAZOLE) [Concomitant]
  4. VICODIN [Concomitant]
  5. METOPROLOL (METOPROLOL) [Concomitant]
  6. PROCHLORPERAZINE EDISYLATE (PROCHLORPERAZINE EDISYLATE) [Concomitant]
  7. ACETAMINOPHEN [Concomitant]

REACTIONS (3)
  - MENTAL DISORDER DUE TO A GENERAL MEDICAL CONDITION [None]
  - MYCOTIC ANEURYSM [None]
  - PYREXIA [None]
